FAERS Safety Report 5056770-5 (Version None)
Quarter: 2006Q2

REPORT INFORMATION
  Report Type: 
  Country: None (occurrence: None)
  Receive Date: 20060616
  Receipt Date: 20060520
  Transmission Date: 20061013
  Serious: No
  Sender: FDA-Public Use
  Company Number: 222447

PATIENT
  Age: 54 Year
  Sex: Female

DRUGS (4)
  1. AVASTIN [Suspect]
     Indication: INFLAMMATORY CARCINOMA OF THE BREAST
     Dosage: 2/WEEK/ Q2W
     Dates: start: 20051201
  2. HERCEPTIN [Suspect]
     Indication: INFLAMMATORY CARCINOMA OF THE BREAST
     Dosage: 1/WEEK
     Dates: start: 20050201
  3. ARIMIDEX [Concomitant]
  4. TAXOL [Concomitant]

REACTIONS (1)
  - EPISTAXIS [None]
